FAERS Safety Report 7918641-3 (Version None)
Quarter: 2011Q4

REPORT INFORMATION
  Report Type: 
  Country: None (occurrence: None)
  Receive Date: 20111114
  Receipt Date: 20111102
  Transmission Date: 20120403
  Serious: Yes (Other)
  Sender: FDA-Public Use
  Company Number: CLOF-1000582

PATIENT
  Age: 63 Year
  Sex: Male

DRUGS (8)
  1. EVOLTRA (CLOFARABINE) SOLUTION FOR INFUSION [Suspect]
     Indication: ACUTE MYELOID LEUKAEMIA
     Dates: start: 20090605, end: 20090605
  2. LISINOPRIL (LISINOPRIL DIHYDRATE) [Concomitant]
  3. ATORVASTATIN CALCIUM [Concomitant]
  4. ACICLOVIR (ACICLOVIR SODIUM) [Concomitant]
  5. OMEPRAZOL (OMEPRAZOLE MAGNESIUM) [Concomitant]
  6. GAVISCON (SODIUM BICARBONATE) [Concomitant]
  7. FLUCONAZOLE [Concomitant]
  8. DAUNORUBICIN HCL [Concomitant]

REACTIONS (3)
  - CHILLS [None]
  - PYREXIA [None]
  - BRONCHOSPASM [None]
